FAERS Safety Report 5323801-4 (Version None)
Quarter: 2007Q2

REPORT INFORMATION
  Report Type: 
  Country: None (occurrence: None)
  Receive Date: 20070514
  Receipt Date: 20070510
  Transmission Date: 20071010
  Serious: Yes (Other)
  Sender: FDA-Public Use
  Company Number: A0650805A

PATIENT
  Age: 73 Year
  Sex: Female

DRUGS (14)
  1. COREG [Suspect]
     Indication: CARDIAC FAILURE CONGESTIVE
     Route: 048
  2. COREG CR [Suspect]
     Indication: CARDIAC FAILURE CONGESTIVE
     Dosage: 20MG PER DAY
     Route: 048
  3. FUROSEMIDE [Concomitant]
  4. POTASSIUM ACETATE [Concomitant]
  5. PREMARIN [Concomitant]
  6. ALTACE [Concomitant]
  7. CLONIDINE [Concomitant]
  8. COZAAR [Concomitant]
  9. NEXIUM [Concomitant]
  10. PLAVIX [Concomitant]
  11. CENTRUM SILVER [Concomitant]
  12. NITROGLYCERIN [Concomitant]
  13. FISH OIL [Concomitant]
  14. RED YEAST RICE [Concomitant]

REACTIONS (4)
  - BLINDNESS UNILATERAL [None]
  - CARDIAC FLUTTER [None]
  - CATARACT [None]
  - DYSPNOEA [None]
